FAERS Safety Report 16830593 (Version 1)
Quarter: 2019Q3

REPORT INFORMATION
  Report Type: Spontaneous
  Country: ES (occurrence: ES)
  Receive Date: 20190920
  Receipt Date: 20190920
  Transmission Date: 20191005
  Serious: Yes (Other)
  Sender: FDA-Public Use
  Company Number: ES-CIPLA LTD.-2019ES06430

PATIENT

DRUGS (3)
  1. CINFAMUCOL CARBOCISTEINA [Concomitant]
     Indication: UPPER RESPIRATORY TRACT INFECTION
     Dosage: 1 GRAM, TID (EVERY 8 HOURS)
     Route: 048
     Dates: start: 20190722, end: 20190803
  2. LEVOFLOXACIN. [Suspect]
     Active Substance: LEVOFLOXACIN
     Indication: RESPIRATORY TRACT INFECTION
     Dosage: 500 MILLIGRAM, BID (EVERY 12 HOURS)
     Route: 048
     Dates: start: 20190722, end: 20190728
  3. ROMILAR [DEXTROMETHORPHAN HYDROBROMIDE] [Concomitant]
     Indication: UPPER RESPIRATORY TRACT INFECTION
     Dosage: 15 MILLIGRAM, TID (EVERY 8 HOURS)
     Route: 048
     Dates: start: 20190722, end: 20190803

REACTIONS (1)
  - Myopathy [Recovering/Resolving]

NARRATIVE: CASE EVENT DATE: 20190727
